FAERS Safety Report 9816219 (Version 1)
Quarter: 2014Q1

REPORT INFORMATION
  Report Type: Report from Study
  Country: US (occurrence: US)
  Receive Date: 20140114
  Receipt Date: 20140114
  Transmission Date: 20141002
  Serious: Yes (Death)
  Sender: FDA-Public Use
  Company Number: US-ACTELION-A-NJ2014-93302

PATIENT
  Age: 63 Year
  Sex: Female

DRUGS (4)
  1. TRACLEER [Suspect]
     Indication: PULMONARY ARTERIAL HYPERTENSION
     Dosage: UNK
     Route: 048
     Dates: start: 200203
  2. SILDENAFIL [Concomitant]
  3. TYVASO [Concomitant]
  4. REMODULIN [Concomitant]

REACTIONS (1)
  - Death [Fatal]
